FAERS Safety Report 6711944-X (Version None)
Quarter: 2010Q2

REPORT INFORMATION
  Report Type: 
  Country: None (occurrence: None)
  Receive Date: 20100505
  Receipt Date: 20100426
  Transmission Date: 20101027
  Serious: Yes (Other)
  Sender: FDA-Public Use
  Company Number: US-BRISTOL-MYERS SQUIBB COMPANY-15080880

PATIENT
  Age: 82 Year
  Sex: Female

DRUGS (10)
  1. ONGLYZA [Suspect]
     Dates: start: 20100329, end: 20100413
  2. COUMADIN [Concomitant]
  3. LASIX [Concomitant]
  4. METFORMIN HCL [Concomitant]
  5. SYNTHROID [Concomitant]
  6. METOPROLOL [Concomitant]
  7. LISINOPRIL [Concomitant]
  8. AMLODIPINE [Concomitant]
  9. DIGOXIN [Concomitant]
  10. VITAMIN D [Concomitant]

REACTIONS (3)
  - EYELID OEDEMA [None]
  - FACE OEDEMA [None]
  - RASH [None]
